FAERS Safety Report 6051483-5 (Version None)
Quarter: 2009Q1

REPORT INFORMATION
  Report Type: 
  Country: None (occurrence: None)
  Receive Date: 20090126
  Receipt Date: 20090119
  Transmission Date: 20090719
  Serious: Yes (Hospitalization)
  Sender: FDA-Public Use
  Company Number: A0763943A

PATIENT
  Age: 53 Year
  Sex: Female

DRUGS (7)
  1. WELLBUTRIN XL [Suspect]
     Indication: DEPRESSION
     Dosage: 300MG PER DAY
     Route: 048
     Dates: start: 20081101, end: 20081229
  2. INDERAL [Concomitant]
  3. LIPITOR [Concomitant]
  4. CYMBALTA [Concomitant]
  5. XANAX [Concomitant]
  6. REGLAN [Concomitant]
  7. ACIPHEX [Concomitant]

REACTIONS (5)
  - ALCOHOL PROBLEM [None]
  - ASTHENIA [None]
  - DEPRESSION [None]
  - FALL [None]
  - SENSATION OF PRESSURE [None]
